FAERS Safety Report 4323058-7 (Version None)
Quarter: 2004Q1

REPORT INFORMATION
  Report Type: 
  Country: None (occurrence: None)
  Receive Date: 20040325
  Receipt Date: 20040316
  Transmission Date: 20041129
  Serious: Yes (Hospitalization)
  Sender: FDA-Public Use
  Company Number: 200411062FR

PATIENT
  Age: 51 Year
  Sex: Female

DRUGS (6)
  1. LOVENOX [Suspect]
     Route: 058
     Dates: start: 20040115, end: 20040126
  2. RISPERDAL [Suspect]
     Route: 048
     Dates: end: 20040123
  3. ROVAMYCINE [Concomitant]
  4. ROCEPHIN [Concomitant]
  5. TEGRETOL-XR [Concomitant]
  6. MOPRAL [Concomitant]

REACTIONS (6)
  - ALANINE AMINOTRANSFERASE INCREASED [None]
  - ASPARTATE AMINOTRANSFERASE INCREASED [None]
  - BLOOD LACTATE DEHYDROGENASE INCREASED [None]
  - CYTOLYTIC HEPATITIS [None]
  - GAMMA-GLUTAMYLTRANSFERASE INCREASED [None]
  - HEPATITIS CHOLESTATIC [None]
